FAERS Safety Report 10047447 (Version 1)
Quarter: 2014Q1

REPORT INFORMATION
  Report Type: Spontaneous
  Country: US (occurrence: None)
  Receive Date: 20140327
  Receipt Date: 20140327
  Transmission Date: 20141002
  Serious: Yes (Other)
  Sender: FDA-Public Use
  Company Number: 393 (EXCELLIUM)

PATIENT
  Sex: Female

DRUGS (4)
  1. IMIPRAMINE HYDROCHLORIDE [Suspect]
     Indication: DEPRESSION
     Dosage: ORAL (047)
     Route: 048
     Dates: start: 20131210
  2. HYDROCHLOROTHIAZIDE [Concomitant]
  3. CLONAZEPAM [Concomitant]
  4. SUNITON [Concomitant]

REACTIONS (3)
  - Nausea [None]
  - Vomiting [None]
  - Dizziness [None]
